FAERS Safety Report 5922575-3 (Version None)
Quarter: 2008Q3

REPORT INFORMATION
  Report Type: 
  Country: None (occurrence: None)
  Receive Date: 20080909
  Receipt Date: 20080125
  Transmission Date: 20090109
  Serious: Yes (Death, Other)
  Sender: FDA-Public Use
  Company Number: 163-20785-06020060

PATIENT
  Age: 70 Year
  Sex: Male

DRUGS (3)
  1. THALOMID [Suspect]
     Indication: MULTIPLE MYELOMA
     Dosage: 100 MG, DAILY, ORAL
     Route: 048
     Dates: start: 20020628, end: 20040301
  2. DEXAMETHASONE TAB [Concomitant]
  3. LORTAB [Concomitant]

REACTIONS (6)
  - BENIGN PROSTATIC HYPERPLASIA [None]
  - BLADDER MASS [None]
  - BLOOD CREATININE INCREASED [None]
  - DISEASE PROGRESSION [None]
  - NEUROPATHY PERIPHERAL [None]
  - SPINAL OSTEOARTHRITIS [None]
